FAERS Safety Report 11891316 (Version 2)
Quarter: 2016Q4

REPORT INFORMATION
  Report Type: Spontaneous
  Country: US (occurrence: US)
  Receive Date: 20160106
  Receipt Date: 20161208
  Transmission Date: 20170206
  Serious: No
  Sender: FDA-Public Use
  Company Number: US-BAYER-2016-001971

PATIENT
  Age: 69 Year
  Sex: Female
  Weight: 44.44 kg

DRUGS (2)
  1. MIRALAX [Suspect]
     Active Substance: POLYETHYLENE GLYCOL 3350
     Indication: CONSTIPATION
     Dosage: 1/2 DF, 4-5 DAYS A WEEK
     Route: 048
  2. MIRALAX [Suspect]
     Active Substance: POLYETHYLENE GLYCOL 3350
     Indication: CONSTIPATION
     Dosage: 2 DF (TEASPOON), PRN
     Route: 048
     Dates: start: 2014

REACTIONS (4)
  - Muscle spasms [Recovered/Resolved]
  - Product use issue [None]
  - Product use issue [Unknown]
  - Nausea [Recovered/Resolved]

NARRATIVE: CASE EVENT DATE: 20160103
